FAERS Safety Report 4663334-1 (Version None)
Quarter: 2005Q2

REPORT INFORMATION
  Report Type: 
  Country: None (occurrence: None)
  Receive Date: 20050513
  Receipt Date: 20050504
  Transmission Date: 20051028
  Serious: Yes (Death)
  Sender: FDA-Public Use
  Company Number: JP-2005-004472

PATIENT
  Age: 65 Year
  Sex: Male

DRUGS (8)
  1. PROSCOPE 300 (IOPROMIDE) INFUSION [Suspect]
     Indication: COMPUTERISED TOMOGRAM
     Dosage: 100 ML, 1 DOSE, IV BOLUS
     Route: 040
     Dates: start: 20050325, end: 20050325
  2. OPSO (MORPHINE HYDROCHLORIDE) [Concomitant]
  3. DUROTEP (FENTANYL) [Concomitant]
  4. PURSENNID (SENNOSIDE A+B CALCIUM, SENNOSIDE A+B) [Concomitant]
  5. RINDERON [Concomitant]
  6. AMINOFLUID (ELECTROLYTES NOS, AMINO ACIDS NOS) [Concomitant]
  7. VITAMEDIN (THIAMINE DISULFIDE) [Concomitant]
  8. SODIUM CHLORIDE [Concomitant]

REACTIONS (5)
  - ARRHYTHMIA [None]
  - ASPIRATION [None]
  - CARDIO-RESPIRATORY ARREST [None]
  - SHOCK [None]
  - VOMITING [None]
